FAERS Safety Report 11286372 (Version 1)
Quarter: 2015Q3

REPORT INFORMATION
  Report Type: Spontaneous
  Country: US (occurrence: None)
  Receive Date: 20150717
  Receipt Date: 20150717
  Transmission Date: 20151125
  Serious: Yes (Hospitalization, Disabling)
  Sender: FDA-Public Use
  Company Number: 1319843

PATIENT
  Age: 44 Year
  Sex: Female

DRUGS (16)
  1. HYDROCHLOROTHIAZIDE. [Concomitant]
     Active Substance: HYDROCHLOROTHIAZIDE
  2. METFORMIN [Concomitant]
     Active Substance: METFORMIN HYDROCHLORIDE
  3. LISONOPRIL [Concomitant]
  4. CALCIUM [Concomitant]
     Active Substance: CALCIUM
  5. CRANBERRY. [Concomitant]
     Active Substance: CRANBERRY
  6. L-ARGINE [Concomitant]
  7. IBUPROFEN. [Concomitant]
     Active Substance: IBUPROFEN
  8. GABAPENTIN. [Concomitant]
     Active Substance: GABAPENTIN
  9. ATELOLOL [Concomitant]
  10. VITAMIN B COMPLEX [Concomitant]
     Active Substance: CYANOCOBALAMIN\DEXPANTHENOL\NIACINAMIDE\PYRIDOXINE HYDROCHLORIDE\RIBOFLAVIN 5^-PHOSPHATE SODIUM\THIAMINE HYDROCHLORIDE\VITAMIN B COMPLEX
  11. SALONPAS PAIN RELIEVING [Suspect]
     Active Substance: CAMPHOR (SYNTHETIC)\MENTHOL\METHYL SALICYLATE
     Indication: MYALGIA
     Dosage: 5 PATCHES APPLIED TOPICALLY
     Route: 061
     Dates: start: 201401
  12. VICODIN [Concomitant]
     Active Substance: ACETAMINOPHEN\HYDROCODONE BITARTRATE
  13. GLIPIZIDE. [Concomitant]
     Active Substance: GLIPIZIDE
  14. CINNAMON. [Concomitant]
     Active Substance: CINNAMON
  15. FISH OIL [Concomitant]
     Active Substance: FISH OIL
  16. KEFLEX [Concomitant]
     Active Substance: CEPHALEXIN

REACTIONS (15)
  - Toe amputation [None]
  - Diabetic ulcer [None]
  - Gangrene [None]
  - Chemical injury [None]
  - Cellulitis [None]
  - Skin ulcer [None]
  - Application site burn [None]
  - Application site erythema [None]
  - Drug ineffective [None]
  - Application site scar [None]
  - Neuralgia [None]
  - Eschar [None]
  - Treatment noncompliance [None]
  - Dry gangrene [None]
  - Osteomyelitis [None]

NARRATIVE: CASE EVENT DATE: 201401
